FAERS Safety Report 8382941-6 (Version None)
Quarter: 2012Q2

REPORT INFORMATION
  Report Type: 
  Country: None (occurrence: None)
  Receive Date: 20120524
  Receipt Date: 20120510
  Transmission Date: 20120825
  Serious: Yes (Other)
  Sender: FDA-Public Use
  Company Number: US-JNJFOC-20120511971

PATIENT

DRUGS (5)
  1. INTERFERON ALFA [Suspect]
     Indication: HODGKIN'S DISEASE
     Dosage: DAILY FOR 3 DAYS PRIOR TO CHEMOTHERAPY AND ON DAY 4
     Route: 058
  2. VINBLASTINE SULFATE [Suspect]
     Indication: HODGKIN'S DISEASE
     Route: 065
  3. BLEOMYCIN [Suspect]
     Indication: HODGKIN'S DISEASE
     Dosage: 10U/M2
     Route: 065
  4. DACARBAZINE [Suspect]
     Indication: HODGKIN'S DISEASE
     Route: 065
  5. DOXORUBICIN HCL [Suspect]
     Indication: HODGKIN'S DISEASE
     Dosage: ON DAY 4
     Route: 042

REACTIONS (1)
  - HEPATOTOXICITY [None]
